FAERS Safety Report 9101643 (Version 1)
Quarter: 2013Q1

REPORT INFORMATION
  Report Type: Report from Study
  Country: CA (occurrence: CA)
  Receive Date: 20130218
  Receipt Date: 20130218
  Transmission Date: 20140127
  Serious: Yes (Other)
  Sender: FDA-Public Use
  Company Number: CA-JNJFOC-20130204885

PATIENT
  Age: 64 Year
  Sex: Female
  Weight: 111.13 kg

DRUGS (3)
  1. REMICADE [Suspect]
     Indication: PSORIASIS
     Route: 042
  2. REMICADE [Suspect]
     Indication: PSORIASIS
     Route: 042
     Dates: start: 20121012
  3. METHOTREXATE [Suspect]
     Indication: PRODUCT USED FOR UNKNOWN INDICATION
     Dosage: WEEKLY SHOT
     Route: 065
     Dates: end: 201212

REACTIONS (4)
  - Psoriatic arthropathy [Unknown]
  - Liver disorder [Unknown]
  - Psoriasis [Unknown]
  - Influenza [Recovered/Resolved]
